FAERS Safety Report 9558874 (Version 1)
Quarter: 2013Q3

REPORT INFORMATION
  Report Type: Spontaneous
  Country: SE (occurrence: SE)
  Receive Date: 20130927
  Receipt Date: 20130927
  Transmission Date: 20140515
  Serious: Yes (Hospitalization)
  Sender: FDA-Public Use
  Company Number: SE-ROCHE-1281664

PATIENT
  Age: 75 Year
  Sex: Female

DRUGS (2)
  1. LUCENTIS [Suspect]
     Indication: MACULAR DEGENERATION
     Route: 050
     Dates: start: 20110920
  2. LUCENTIS [Suspect]
     Route: 050
     Dates: start: 20130308

REACTIONS (1)
  - Cerebral infarction [Unknown]
